FAERS Safety Report 21270313 (Version 3)
Quarter: 2025Q2

REPORT INFORMATION
  Report Type: Report from Study
  Country: US (occurrence: US)
  Receive Date: 20220830
  Receipt Date: 20250407
  Transmission Date: 20250716
  Serious: Yes (Other)
  Sender: UCB
  Company Number: US-UCBSA-2022023782

PATIENT
  Sex: Female
  Weight: 58 kg

DRUGS (15)
  1. CERTOLIZUMAB PEGOL [Suspect]
     Active Substance: CERTOLIZUMAB PEGOL
     Indication: Psoriatic arthropathy
     Dosage: 200 MILLIGRAM, EV 2 WEEKS(QOW)
     Dates: start: 20220301, end: 20220601
  2. CERTOLIZUMAB PEGOL [Suspect]
     Active Substance: CERTOLIZUMAB PEGOL
     Dosage: 200 MILLIGRAM, EV 2 WEEKS(QOW)
     Route: 058
     Dates: end: 20230911
  3. BLISOVI 24 FE [Concomitant]
     Active Substance: ETHINYL ESTRADIOL\NORETHINDRONE ACETATE
     Indication: Product used for unknown indication
     Route: 048
  4. CLOBETASOL PROPIONATE [Concomitant]
     Active Substance: CLOBETASOL PROPIONATE
     Indication: Rash pruritic
  5. BENADRYL [Concomitant]
     Active Substance: DIPHENHYDRAMINE HYDROCHLORIDE
     Indication: Hypersensitivity
     Dosage: UNK UNK, WEEKLY (QW)
     Route: 048
     Dates: start: 20230306, end: 20230417
  6. BOOSTRIX [Concomitant]
     Active Substance: TETANUS TOXOID, REDUCED DIPHTHERIA TOXOID AND ACELLULAR PERTUSSIS VACCINE, ADSORBED ANTIGENS
     Indication: Product used for unknown indication
  7. INFLUENZA VIRUS VACCINE [Concomitant]
     Active Substance: INFLUENZA VIRUS VACCINE
     Indication: Product used for unknown indication
     Route: 030
     Dates: start: 20220901, end: 20230901
  8. FLUOXETINE HYDROCHLORIDE [Concomitant]
     Active Substance: FLUOXETINE HYDROCHLORIDE
     Indication: Depression
     Dosage: 10 MILLIGRAM, ONCE DAILY (QD)
     Route: 048
     Dates: start: 201702, end: 20230911
  9. DAVESOMERAN\ELASOMERAN [Concomitant]
     Active Substance: DAVESOMERAN\ELASOMERAN
     Indication: Product used for unknown indication
     Dosage: 1 SHOT, ONCE DAILY (QD)
     Route: 030
     Dates: start: 20220919, end: 20220919
  10. MINERALS\VITAMINS [Concomitant]
     Active Substance: MINERALS\VITAMINS
     Indication: Product used for unknown indication
     Dosage: 2 PILL ONCE DAILY (QD)
     Route: 048
     Dates: start: 20221001, end: 20230911
  11. FERROUS SULFATE [Concomitant]
     Active Substance: FERROUS SULFATE
     Indication: Anaemia
     Dosage: 45 MILLIGRAM, ONCE DAILY (QD)
     Route: 048
     Dates: start: 20230629, end: 20230911
  12. TRIAMCINOLONE [Concomitant]
     Active Substance: TRIAMCINOLONE
     Indication: Psoriatic arthropathy
     Dosage: 3.5 WEEKLY,FACE,SCALP OR SKIN
     Route: 061
     Dates: start: 20221215, end: 20230612
  13. TRIAMCINOLONE [Concomitant]
     Active Substance: TRIAMCINOLONE
     Dosage: TOPICAL-FACE, SCALP AND/OR SKIN
     Route: 061
     Dates: start: 20230619, end: 20230911
  14. TYLENOL [Concomitant]
     Active Substance: ACETAMINOPHEN
     Indication: Headache
     Dosage: 1 PILL , MONTHLY (QM)
     Route: 048
     Dates: start: 20230131, end: 20230227
  15. TYLENOL [Concomitant]
     Active Substance: ACETAMINOPHEN
     Route: 048
     Dates: start: 20230306, end: 20230417

REACTIONS (8)
  - Psoriasis [Unknown]
  - Rash pruritic [Recovered/Resolved]
  - Drug eruption [Unknown]
  - Eczema [Unknown]
  - Injection site pain [Not Recovered/Not Resolved]
  - Arthralgia [Not Recovered/Not Resolved]
  - Fatigue [Unknown]
  - Product use issue [Unknown]

NARRATIVE: CASE EVENT DATE: 20220101
